FAERS Safety Report 7285736-X (Version None)
Quarter: 2011Q1

REPORT INFORMATION
  Report Type: 
  Country: None (occurrence: None)
  Receive Date: 20110124
  Receipt Date: 20110110
  Transmission Date: 20110831
  Serious: Yes (Other)
  Sender: FDA-Public Use
  Company Number: WSDF_00726

PATIENT
  Sex: Female
  Weight: 12.7 kg

DRUGS (1)
  1. WINRHO SDF LIQUID [Suspect]
     Indication: IDIOPATHIC THROMBOCYTOPENIC PURPURA
     Dosage: (75 UG/KG TOTAL INTRAVENOUS (NOT OTHERWISE SPECIFIED))
     Route: 042
     Dates: start: 20080410, end: 20080410

REACTIONS (11)
  - INTERNATIONAL NORMALISED RATIO INCREASED [None]
  - INTRAVASCULAR HAEMOLYSIS [None]
  - ANAEMIA [None]
  - PYREXIA [None]
  - BLOOD URINE PRESENT [None]
  - HAEMATURIA [None]
  - VOMITING [None]
  - COAGULOPATHY [None]
  - LIVER FUNCTION TEST ABNORMAL [None]
  - OVERDOSE [None]
  - JAUNDICE [None]
